FAERS Safety Report 21837814 (Version 9)
Quarter: 2023Q2

REPORT INFORMATION
  Report Type: Spontaneous
  Country: US (occurrence: US)
  Receive Date: 20230109
  Receipt Date: 20230425
  Transmission Date: 20230721
  Serious: Yes (Hospitalization, Other)
  Sender: FDA-Public Use
  Company Number: US-PFIZER INC-202300003641

PATIENT
  Age: 87 Year
  Sex: Female
  Weight: 52.163 kg

DRUGS (6)
  1. VYNDAMAX [Suspect]
     Active Substance: TAFAMIDIS
     Indication: Cardiac amyloidosis
     Dosage: ONCE A DAY IN THE MORNING
     Route: 048
  2. VYNDAMAX [Suspect]
     Active Substance: TAFAMIDIS
     Dosage: UNK, 2X/DAY
  3. VYNDAMAX [Suspect]
     Active Substance: TAFAMIDIS
     Dosage: UNK, ALTERNATE DAY (1 ONCE 2DAY)
  4. ELIQUIS [Suspect]
     Active Substance: APIXABAN
     Indication: Anticoagulant therapy
     Dosage: 2.5 MG, 2X/DAY
  5. METOPROLOL [Concomitant]
     Active Substance: METOPROLOL
     Indication: Blood pressure abnormal
     Dosage: 50 MG, 2X/DAY, [50MG TWICE A DAY]
  6. SPIRONOLACTONE [Concomitant]
     Active Substance: SPIRONOLACTONE
     Indication: Urine abnormality
     Dosage: 25 MG, 2X/DAY, [25MG BY MOUTH TWICE A DAY]
     Route: 048

REACTIONS (5)
  - Fall [Recovered/Resolved]
  - Femur fracture [Recovered/Resolved]
  - Body height decreased [Recovered/Resolved]
  - Weight decreased [Recovered/Resolved]
  - Off label use [Unknown]

NARRATIVE: CASE EVENT DATE: 20221001
